FAERS Safety Report 10060273 (Version 1)
Quarter: 2014Q2

REPORT INFORMATION
  Report Type: Report from Study
  Country: BR (occurrence: BR)
  Receive Date: 20140404
  Receipt Date: 20140404
  Transmission Date: 20141212
  Serious: Yes (Other)
  Sender: FDA-Public Use
  Company Number: CHPA2014BR004342

PATIENT
  Age: 56 Year
  Sex: Female

DRUGS (5)
  1. CALCIUM D3 [Suspect]
     Indication: POTENTIATING DRUG INTERACTION
     Dosage: 1 DF, IN THE MORNING
     Route: 048
  2. CALCIUM D3 [Suspect]
     Indication: OFF LABEL USE
  3. ACLASTA [Suspect]
     Indication: OSTEOPOROSIS
     Dosage: 1 DF, EVERY YEAR
     Route: 065
     Dates: start: 2012
  4. BONVIVA [Suspect]
     Route: 065
  5. CALCIUM SANDOZ F [Suspect]
     Dosage: UNK
     Dates: start: 2012, end: 2013

REACTIONS (8)
  - Syncope [Not Recovered/Not Resolved]
  - Drug intolerance [Not Recovered/Not Resolved]
  - Hypoglycaemia [Not Recovered/Not Resolved]
  - Malaise [Not Recovered/Not Resolved]
  - Dizziness [Not Recovered/Not Resolved]
  - Retching [Not Recovered/Not Resolved]
  - Food intolerance [Unknown]
  - Vomiting [Not Recovered/Not Resolved]
